FAERS Safety Report 15397608 (Version 2)
Quarter: 2021Q2

REPORT INFORMATION
  Report Type: Report from Study
  Country: CR (occurrence: CR)
  Receive Date: 20180918
  Receipt Date: 20210426
  Transmission Date: 20210716
  Serious: Yes (Other)
  Sender: FDA-Public Use
  Company Number: PHHY2018CR094445

PATIENT
  Age: 62 Year
  Sex: Male

DRUGS (1)
  1. SCAPHO [Suspect]
     Active Substance: SECUKINUMAB
     Indication: ANKYLOSING SPONDYLITIS
     Dosage: 150 MG, QMO
     Route: 058
     Dates: start: 20190313

REACTIONS (7)
  - Hypertension [Not Recovered/Not Resolved]
  - Cardiac disorder [Unknown]
  - Skin disorder [Unknown]
  - Gastric haemorrhage [Unknown]
  - Nephrolithiasis [Unknown]
  - Hepatitis [Unknown]
  - Infarction [Unknown]
